FAERS Safety Report 16926921 (Version 1)
Quarter: 2019Q4

REPORT INFORMATION
  Report Type: Spontaneous
  Country: GB (occurrence: GB)
  Receive Date: 20191016
  Receipt Date: 20191016
  Transmission Date: 20200122
  Serious: Yes (Other)
  Sender: FDA-Public Use
  Company Number: GB-PFIZER INC-2019429384

PATIENT
  Sex: Female

DRUGS (2)
  1. SODIUM CROMOGLICATE [Suspect]
     Active Substance: CROMOLYN SODIUM
     Indication: SYSTEMIC MASTOCYTOSIS
     Dosage: UNK
     Dates: start: 2017
  2. MONTELUKAST [Concomitant]
     Active Substance: MONTELUKAST SODIUM
     Indication: SYSTEMIC MASTOCYTOSIS
     Dosage: UNK
     Dates: start: 2017

REACTIONS (4)
  - Systemic mastocytosis [Recovering/Resolving]
  - Condition aggravated [Recovering/Resolving]
  - Flushing [Recovering/Resolving]
  - Dizziness [Recovering/Resolving]
